FAERS Safety Report 13671787 (Version 6)
Quarter: 2020Q3

REPORT INFORMATION
  Report Type: Spontaneous
  Country: US (occurrence: US)
  Receive Date: 20170620
  Receipt Date: 20200803
  Transmission Date: 20201102
  Serious: No
  Sender: FDA-Public Use
  Company Number: US-BIOGEN-2017BI00418063

PATIENT
  Age: 55 Year
  Sex: Female

DRUGS (9)
  1. TECFIDERA [Suspect]
     Active Substance: DIMETHYL FUMARATE
     Indication: MULTIPLE SCLEROSIS
     Route: 065
     Dates: start: 20160628, end: 20170313
  2. TECFIDERA [Suspect]
     Active Substance: DIMETHYL FUMARATE
     Route: 065
     Dates: start: 20160614
  3. TECFIDERA [Suspect]
     Active Substance: DIMETHYL FUMARATE
     Route: 065
     Dates: start: 20200220
  4. TECFIDERA [Suspect]
     Active Substance: DIMETHYL FUMARATE
     Route: 065
     Dates: start: 20160627
  5. PREDNISONE. [Suspect]
     Active Substance: PREDNISONE
     Indication: PRODUCT USED FOR UNKNOWN INDICATION
     Route: 065
  6. TECFIDERA [Suspect]
     Active Substance: DIMETHYL FUMARATE
     Route: 065
     Dates: start: 20200221
  7. GILENYA [Concomitant]
     Active Substance: FINGOLIMOD HYDROCHLORIDE
     Indication: PRODUCT USED FOR UNKNOWN INDICATION
     Route: 065
  8. TECFIDERA [Suspect]
     Active Substance: DIMETHYL FUMARATE
     Route: 065
     Dates: start: 20170613
  9. TECFIDERA [Suspect]
     Active Substance: DIMETHYL FUMARATE
     Route: 065
     Dates: start: 202001

REACTIONS (17)
  - Gastric disorder [Unknown]
  - Diarrhoea [Recovered/Resolved]
  - Vomiting [Unknown]
  - Migraine [Unknown]
  - Fall [Recovered/Resolved]
  - Rhinorrhoea [Unknown]
  - Hypoglycaemia [Recovered/Resolved]
  - Multiple sclerosis relapse [Recovered/Resolved]
  - Cough [Unknown]
  - Blood glucose increased [Unknown]
  - White blood cell count decreased [Recovered/Resolved]
  - Sneezing [Unknown]
  - Ageusia [Unknown]
  - Headache [Unknown]
  - Irritable bowel syndrome [Unknown]
  - Platelet count decreased [Unknown]
  - Platelet disorder [Unknown]

NARRATIVE: CASE EVENT DATE: 20170312
